FAERS Safety Report 8602568-8 (Version None)
Quarter: 2012Q3

REPORT INFORMATION
  Report Type: 
  Country: None (occurrence: None)
  Receive Date: 20120817
  Receipt Date: 20120810
  Transmission Date: 20120928
  Serious: Yes (Hospitalization, Other)
  Sender: FDA-Public Use
  Company Number: PHEH2012US014236

PATIENT
  Sex: Female
  Weight: 72.562 kg

DRUGS (7)
  1. ASPIRIN [Concomitant]
  2. ZANAFLEX [Concomitant]
  3. GILENYA [Suspect]
     Indication: MULTIPLE SCLEROSIS
     Dosage: 0.5 MG, DAILY
     Route: 048
     Dates: start: 20120523, end: 20120722
  4. PRAVASTATIN [Concomitant]
  5. EFFEXOR [Concomitant]
  6. LOPRESSOR [Concomitant]
  7. METOPROLOL TARTRATE [Concomitant]

REACTIONS (4)
  - ARTERIAL OCCLUSIVE DISEASE [None]
  - CENTRAL NERVOUS SYSTEM LESION [None]
  - DYSARTHRIA [None]
  - CEREBROVASCULAR ACCIDENT [None]
